FAERS Safety Report 11294631 (Version 1)
Quarter: 2015Q3

REPORT INFORMATION
  Report Type: Report from Study
  Country: BR (occurrence: BR)
  Receive Date: 20150722
  Receipt Date: 20150722
  Transmission Date: 20151125
  Serious: Yes (Other)
  Sender: FDA-Public Use
  Company Number: PHHY2015BR084695

PATIENT
  Sex: Female
  Weight: 66 kg

DRUGS (2)
  1. ACLASTA [Suspect]
     Active Substance: ZOLEDRONIC ACID
     Indication: PRODUCT USED FOR UNKNOWN INDICATION
     Dosage: 5 MG, (ONCE A YEAR)
     Route: 065
     Dates: start: 2014
  2. XARELTO [Concomitant]
     Active Substance: RIVAROXABAN
     Indication: ANTICOAGULANT THERAPY
     Dosage: 15 MG, UNK
     Route: 065

REACTIONS (12)
  - Speech disorder [Unknown]
  - Injury [Unknown]
  - Rib fracture [Unknown]
  - Foot fracture [Unknown]
  - Myocardial infarction [Unknown]
  - Visual acuity reduced [Unknown]
  - Depressed mood [Unknown]
  - Pain [Unknown]
  - Hearing impaired [Unknown]
  - Fall [Unknown]
  - Gait disturbance [Unknown]
  - Memory impairment [Unknown]

NARRATIVE: CASE EVENT DATE: 2014
